FAERS Safety Report 4693439-0 (Version None)
Quarter: 2005Q2

REPORT INFORMATION
  Report Type: 
  Country: None (occurrence: None)
  Receive Date: 20050617
  Receipt Date: 20050526
  Transmission Date: 20051028
  Serious: Yes (Other)
  Sender: FDA-Public Use
  Company Number: PHEH2005US05992

PATIENT
  Age: 63 Year
  Sex: Male
  Weight: 126 kg

DRUGS (12)
  1. ZOMETA [Suspect]
     Indication: PROSTATE CANCER
     Dosage: 4 MG, QMO
     Dates: start: 20021126, end: 20050414
  2. LIPITOR [Concomitant]
     Dosage: 20 MG, QD
     Route: 048
  3. ACTOS /USA/ [Concomitant]
     Dosage: 15 MG, QD
     Route: 048
  4. LORTAB [Concomitant]
     Dosage: 19 UNK, Q4H
     Route: 048
  5. TRANDOLAPRIL [Concomitant]
     Dosage: 1 MG, QD
     Route: 048
  6. TAXOTERE [Concomitant]
  7. DEXAMETHASONE [Concomitant]
     Dosage: 0.75 MG, QD
     Route: 048
     Dates: start: 20040901
  8. ATIVAN [Concomitant]
     Dosage: 1 MG, UNK
     Route: 048
  9. KETOCONAZOLE [Concomitant]
     Dates: start: 20040901, end: 20050302
  10. GLYBURIDE [Concomitant]
     Dosage: 10G, 1 1/2/DAY, BID
     Route: 048
     Dates: start: 20020101
  11. LUPRON [Concomitant]
     Route: 058
     Dates: start: 20020101
  12. ADDEL N ^BAXTER^ [Concomitant]
     Dosage: 8 MG, QD
     Route: 048

REACTIONS (6)
  - ASEPTIC NECROSIS BONE [None]
  - BONE DISORDER [None]
  - DYSAESTHESIA [None]
  - OSTEONECROSIS [None]
  - PAIN [None]
  - SWELLING [None]
